FAERS Safety Report 15839921 (Version 9)
Quarter: 2022Q4

REPORT INFORMATION
  Report Type: Spontaneous
  Country: US (occurrence: US)
  Receive Date: 20190117
  Receipt Date: 20221116
  Transmission Date: 20230113
  Serious: No
  Sender: FDA-Public Use
  Company Number: US-PFIZER INC-2019019927

PATIENT
  Age: 40 Year
  Sex: Female

DRUGS (18)
  1. PREMPRO [Suspect]
     Active Substance: ESTROGENS, CONJUGATED\MEDROXYPROGESTERONE ACETATE
     Indication: Hormone therapy
     Dosage: 20 MG, 1X/DAY
     Dates: start: 1988
  2. PREMPRO [Suspect]
     Active Substance: ESTROGENS, CONJUGATED\MEDROXYPROGESTERONE ACETATE
     Indication: Menopause
     Dosage: 1 DF, ALTERNATE DAY
     Dates: start: 20190124
  3. PREMPRO [Suspect]
     Active Substance: ESTROGENS, CONJUGATED\MEDROXYPROGESTERONE ACETATE
     Indication: Night sweats
     Dosage: TAKE 1 TABLET BY MOUTH DAILY
     Route: 048
  4. PREMPRO [Suspect]
     Active Substance: ESTROGENS, CONJUGATED\MEDROXYPROGESTERONE ACETATE
     Indication: Morbid thoughts
  5. PREMPRO [Suspect]
     Active Substance: ESTROGENS, CONJUGATED\MEDROXYPROGESTERONE ACETATE
     Indication: Menopausal symptoms
  6. AMBIEN [Concomitant]
     Active Substance: ZOLPIDEM TARTRATE
     Indication: Sleep disorder
     Dosage: 10 MG, 1X/DAY [ONE TIME AT BED]
     Dates: start: 2017
  7. AMARYL [Concomitant]
     Active Substance: GLIMEPIRIDE
     Indication: Blood glucose abnormal
     Dosage: 4 MG, 1X/DAY
     Dates: start: 2016
  8. AMLODIPINE [Concomitant]
     Active Substance: AMLODIPINE BESYLATE
     Indication: Blood pressure abnormal
     Dosage: 5 MG, 1X/DAY
     Route: 048
     Dates: start: 20210419
  9. CEFIXIME [Concomitant]
     Active Substance: CEFIXIME
     Indication: Muscle spasms
     Dosage: 10 MG, AS NEEDED [THREE TIMES DAILY]
     Dates: start: 201611
  10. JANUVIA [Concomitant]
     Active Substance: SITAGLIPTIN PHOSPHATE
     Indication: Blood glucose abnormal
     Dosage: 100 MG, 1X/DAY
     Dates: start: 2016
  11. LEXAPRO [Concomitant]
     Active Substance: ESCITALOPRAM OXALATE
     Indication: Depression
     Dosage: 20 MG, 2X/DAY
     Dates: start: 2005
  12. LEXAPRO [Concomitant]
     Active Substance: ESCITALOPRAM OXALATE
     Indication: Anxiety
  13. LIPITOR [Concomitant]
     Active Substance: ATORVASTATIN CALCIUM
     Indication: Blood cholesterol abnormal
     Dosage: 80 MG, 1X/DAY
     Dates: start: 201704
  14. LISINOPRIL [Concomitant]
     Active Substance: LISINOPRIL
     Dosage: 20 MG, 1X/DAY
     Dates: start: 2015
  15. METOPROLOL FUMARATE [Concomitant]
     Active Substance: METOPROLOL FUMARATE
     Indication: Cardiac disorder
     Dosage: 25 MG, 2X/DAY
     Dates: start: 2015
  16. PRILOSEC [Concomitant]
     Active Substance: OMEPRAZOLE MAGNESIUM
     Indication: Gastrooesophageal reflux disease
     Dosage: 20 MG, 2X/DAY
     Dates: start: 1998
  17. ADENOSINE [Concomitant]
     Active Substance: ADENOSINE
     Indication: Blood triglycerides abnormal
     Dosage: 145 MG, 1X/DAY
     Dates: start: 2015
  18. VITAMIN B12 [Concomitant]
     Active Substance: CYANOCOBALAMIN
     Dosage: 1000 UG/ML, UNK [EVERY 12 DAYS]
     Dates: start: 200406

REACTIONS (7)
  - Drug effective for unapproved indication [Unknown]
  - Off label use [Unknown]
  - Malaise [Recovered/Resolved]
  - Vitamin B12 deficiency [Recovered/Resolved]
  - Gait disturbance [Unknown]
  - Prescribed overdose [Unknown]
  - Intentional product misuse [Unknown]

NARRATIVE: CASE EVENT DATE: 19880101
